FAERS Safety Report 10897652 (Version 1)
Quarter: 2015Q1

REPORT INFORMATION
  Report Type: Spontaneous
  Country: US (occurrence: US)
  Receive Date: 20150309
  Receipt Date: 20150309
  Transmission Date: 20150721
  Serious: Yes (Other)
  Sender: FDA-Public Use
  Company Number: US-PFIZER INC-2015079330

PATIENT
  Age: 58 Year
  Sex: Female

DRUGS (1)
  1. SUTENT [Suspect]
     Active Substance: SUNITINIB MALATE
     Indication: NEOPLASM MALIGNANT
     Dosage: 50 MG, DAILY
     Route: 048
     Dates: start: 20150124

REACTIONS (5)
  - Neoplasm malignant [Unknown]
  - Arthritis [Unknown]
  - Blood pressure increased [Unknown]
  - Disease progression [Unknown]
  - Headache [Unknown]

NARRATIVE: CASE EVENT DATE: 20150226
